FAERS Safety Report 8389252-3 (Version None)
Quarter: 2012Q2

REPORT INFORMATION
  Report Type: 
  Country: None (occurrence: None)
  Receive Date: 20120528
  Receipt Date: 20120523
  Transmission Date: 20120825
  Serious: No
  Sender: FDA-Public Use
  Company Number: US-BAYER-2012-051929

PATIENT
  Age: 86 Year
  Sex: Female
  Weight: 66 kg

DRUGS (2)
  1. FOLIC ACID [Concomitant]
  2. NAPROXEN SODIUM [Suspect]
     Indication: ANALGESIC THERAPY
     Dosage: 1 TABLET AS NEEDED - 24 COUNT
     Route: 048
     Dates: end: 20120520

REACTIONS (1)
  - DIZZINESS [None]
